APPROVED DRUG PRODUCT: MEMANTINE HYDROCHLORIDE
Active Ingredient: MEMANTINE HYDROCHLORIDE
Strength: 21MG
Dosage Form/Route: CAPSULE, EXTENDED RELEASE;ORAL
Application: A206135 | Product #003
Applicant: APOTEX INC
Approved: Nov 22, 2016 | RLD: No | RS: No | Type: DISCN